FAERS Safety Report 14682639 (Version 1)
Quarter: 2018Q1

REPORT INFORMATION
  Report Type: Spontaneous
  Country: NO (occurrence: NO)
  Receive Date: 20180327
  Receipt Date: 20180327
  Transmission Date: 20180509
  Serious: Yes (Death)
  Sender: FDA-Public Use
  Company Number: NO-ROCHE-2090426

PATIENT
  Age: 77 Year
  Sex: Male
  Weight: 63 kg

DRUGS (8)
  1. POLARAMINE [Concomitant]
     Active Substance: DEXCHLORPHENIRAMINE MALEATE
     Dosage: TOTAL DOSE 5 MG AS PREMEDICATION ONE HOUR BEFORE INFUSION WITH OBINUTUZUMAB
     Route: 042
  2. NEURONTIN [Concomitant]
     Active Substance: GABAPENTIN
     Route: 048
  3. PARACETAMOL [Concomitant]
     Active Substance: ACETAMINOPHEN
     Dosage: TOTAL DOSE 1 GRAM AS PREMEDICATION ONE HOUR BEFORE INFUSION WITH OBINUTUZUMAB
     Route: 048
     Dates: start: 20171101, end: 20171101
  4. ZOLOFT [Concomitant]
     Active Substance: SERTRALINE HYDROCHLORIDE
     Route: 048
  5. DEXAMETHASONE. [Concomitant]
     Active Substance: DEXAMETHASONE
     Dosage: TOTAL DOSE 20 MG, AS PREMEDICATION ONE HOUR BEFORE INFUSION WITH OBINUTUZUMAB
     Route: 042
  6. GAZYVARO [Suspect]
     Active Substance: OBINUTUZUMAB
     Indication: LYMPHOCYTIC LYMPHOMA
  7. SOMAC [Concomitant]
     Active Substance: PANTOPRAZOLE SODIUM
     Route: 048
  8. GAZYVARO [Suspect]
     Active Substance: OBINUTUZUMAB
     Indication: CHRONIC LYMPHOCYTIC LEUKAEMIA
     Dosage: TOTAL DOSE: 100 MG
     Route: 042
     Dates: start: 20171101, end: 20171101

REACTIONS (6)
  - Rhythm idioventricular [Fatal]
  - Delirium [Fatal]
  - Metabolic acidosis [Fatal]
  - Electrolyte imbalance [Fatal]
  - Cardiac arrest [Fatal]
  - Tumour lysis syndrome [Fatal]

NARRATIVE: CASE EVENT DATE: 20171101
